FAERS Safety Report 17858100 (Version 1)
Quarter: 2020Q2

REPORT INFORMATION
  Report Type: Report from Study
  Country: CN (occurrence: CN)
  Receive Date: 20200604
  Receipt Date: 20200604
  Transmission Date: 20200714
  Serious: Yes (Other)
  Sender: FDA-Public Use
  Company Number: CN-ROCHE-2606450

PATIENT

DRUGS (5)
  1. RITUXIMAB. [Suspect]
     Active Substance: RITUXIMAB
     Indication: CHRONIC LYMPHOCYTIC LEUKAEMIA
     Dosage: D1 OF FIRST CYCLE
     Route: 042
  2. CYCLOPHOSPHAMIDE. [Suspect]
     Active Substance: CYCLOPHOSPHAMIDE
     Indication: CHRONIC LYMPHOCYTIC LEUKAEMIA
     Route: 042
  3. FLUDARABINE [Suspect]
     Active Substance: FLUDARABINE PHOSPHATE
     Indication: CHRONIC LYMPHOCYTIC LEUKAEMIA
     Route: 042
  4. PROMETHAZINE [Concomitant]
     Active Substance: PROMETHAZINE HYDROCHLORIDE
     Indication: ALLERGY PROPHYLAXIS
     Dosage: BEFORE RTX INFUSION
     Route: 030
  5. RITUXIMAB. [Suspect]
     Active Substance: RITUXIMAB
     Dosage: THE DOSE WAS INCREASED TO 500MG/M2 ON THE INITIAL DAY OF THE 2ND CHEMOTHERAPY CYCLE
     Route: 042

REACTIONS (17)
  - Hypersensitivity [Unknown]
  - Gastrointestinal disorder [Unknown]
  - Renal impairment [Unknown]
  - Thrombocytopenia [Unknown]
  - Bone marrow failure [Unknown]
  - Hepatic function abnormal [Unknown]
  - Pyrexia [Unknown]
  - Rash [Unknown]
  - Herpes zoster [Unknown]
  - Intentional product use issue [Unknown]
  - Leukopenia [Unknown]
  - Enteritis infectious [Unknown]
  - Stomatitis [Unknown]
  - Off label use [Unknown]
  - Anaemia [Unknown]
  - Bronchospasm [Unknown]
  - Pneumonia [Unknown]
